FAERS Safety Report 12105847 (Version 1)
Quarter: 2016Q1

REPORT INFORMATION
  Report Type: Spontaneous
  Country: US (occurrence: None)
  Receive Date: 20160222
  Receipt Date: 20160222
  Transmission Date: 20160526
  Serious: Yes (Death, Life-Threatening, Disabling, Other)
  Sender: FDA-Public Use
  Company Number: None

PATIENT
  Age: 62 Year
  Sex: Male
  Weight: 74.84 kg

DRUGS (12)
  1. HARVONI [Suspect]
     Active Substance: LEDIPASVIR\SOFOSBUVIR
     Indication: HEPATITIS C
     Route: 048
     Dates: start: 20150720, end: 20151014
  2. OXYCODONE [Concomitant]
     Active Substance: OXYCODONE
  3. DEXAMETHASONE. [Concomitant]
     Active Substance: DEXAMETHASONE
  4. MENS MULTIVITAMIN [Concomitant]
  5. LACTULOSE. [Concomitant]
     Active Substance: LACTULOSE
  6. ZOFRAN [Concomitant]
     Active Substance: ONDANSETRON HYDROCHLORIDE
  7. LORAZEPAM. [Concomitant]
     Active Substance: LORAZEPAM
  8. LASIX [Concomitant]
     Active Substance: FUROSEMIDE
  9. PROTONIX [Concomitant]
     Active Substance: PANTOPRAZOLE SODIUM
  10. VITAMIN B12 [Concomitant]
     Active Substance: CYANOCOBALAMIN
  11. MORPHINE LIQUID [Concomitant]
  12. NADOLOL. [Concomitant]
     Active Substance: NADOLOL

REACTIONS (1)
  - Hepatic cancer [None]

NARRATIVE: CASE EVENT DATE: 20150831
